FAERS Safety Report 8602632 (Version 3)
Quarter: 2012Q4

REPORT INFORMATION
  Report Type: 
  Country: US (occurrence: US)
  Receive Date: 20120607
  Receipt Date: 20121024
  Transmission Date: 20130627
  Serious: No
  Sender: FDA-Public Use
  Company Number: US-PFIZER INC-2012135631

PATIENT
  Age: 55 Year
  Sex: Female
  Weight: 77.1 kg

DRUGS (9)
  1. SKELAXIN [Suspect]
     Indication: FIBROMYALGIA
     Dosage: 800 mg, 3x/day
     Route: 048
  2. SKELAXIN [Suspect]
     Indication: INTERVERTEBRAL DISC PROTRUSION
  3. SKELAXIN [Suspect]
     Indication: BACK PAIN
  4. LYRICA [Interacting]
     Indication: FIBROMYALGIA
     Dosage: 75 mg, 2x/day
     Route: 048
     Dates: start: 2012
  5. VISTARIL [Interacting]
     Indication: ANXIETY
     Dosage: 50 mg, 3x/day
     Route: 048
  6. CYMBALTA [Interacting]
     Indication: ANTIDEPRESSANT THERAPY
     Dosage: 30 mg, 1x/day
     Route: 048
  7. NAPROXEN [Concomitant]
     Dosage: 500 mg, 1x/day
  8. OXYCONTIN [Concomitant]
     Dosage: 30 mg, 4x/day
  9. XANAX [Concomitant]
     Dosage: 2 mg, 1x/day

REACTIONS (8)
  - Incorrect dose administered [Unknown]
  - Drug dose omission [Unknown]
  - Arthralgia [Recovered/Resolved]
  - Muscular weakness [Recovered/Resolved]
  - Burning sensation [Recovered/Resolved]
  - Oedema peripheral [Recovered/Resolved]
  - Drug interaction [Unknown]
  - Intervertebral disc protrusion [Unknown]
